FAERS Safety Report 4822523-3 (Version None)
Quarter: 2005Q4

REPORT INFORMATION
  Report Type: 
  Country: None (occurrence: None)
  Receive Date: 20051108
  Receipt Date: 20051027
  Transmission Date: 20060501
  Serious: Yes (Hospitalization)
  Sender: FDA-Public Use
  Company Number: US-JNJFOC-20051006217

PATIENT
  Sex: Female
  Weight: 113.4 kg

DRUGS (22)
  1. INFLIXIMAB [Suspect]
     Indication: RHEUMATOID ARTHRITIS
     Route: 042
  2. ALLERGY INJECTIONS [Concomitant]
  3. ASPIRIN [Concomitant]
  4. BECONASE [Concomitant]
  5. CELEXA [Concomitant]
  6. DETROL [Concomitant]
  7. DYAZIDE [Concomitant]
  8. DYAZIDE [Concomitant]
  9. FLEXERIL [Concomitant]
  10. FOLIC ACID [Concomitant]
  11. HYDROCODONE [Concomitant]
  12. METHOTREXATE [Concomitant]
  13. OXYCONTIN [Concomitant]
  14. PREDNISONE [Concomitant]
  15. PREVACID [Concomitant]
  16. SYNTHROID [Concomitant]
  17. TESSALON [Concomitant]
  18. XANAX [Concomitant]
  19. MOBIC [Concomitant]
  20. LIPITOR [Concomitant]
  21. COMBIVENT [Concomitant]
  22. COMBIVENT [Concomitant]

REACTIONS (7)
  - AORTIC VALVE INCOMPETENCE [None]
  - DIARRHOEA [None]
  - HAEMATOMA [None]
  - HAEMOGLOBIN DECREASED [None]
  - INTERNATIONAL NORMALISED RATIO INCREASED [None]
  - MITRAL VALVE INCOMPETENCE [None]
  - STAPHYLOCOCCAL INFECTION [None]
